FAERS Safety Report 9228387 (Version 1)
Quarter: 2013Q1

REPORT INFORMATION
  Report Type: Spontaneous
  Country: US (occurrence: None)
  Receive Date: 20121024
  Receipt Date: 20121024
  Transmission Date: 20140127
  Serious: Yes (Other)
  Sender: FDA-Public Use
  Company Number: DSA_56025_2012

PATIENT
  Sex: Male

DRUGS (4)
  1. WELLBUTRIN [Suspect]
     Indication: DEPRESSION
  2. SEROQUEL [Suspect]
     Indication: DEPRESSION
  3. LEXAPRO [Suspect]
     Indication: DEPRESSION
     Dosage: (DF ORAL)
     Route: 048
  4. PRISTIQ 50 MG (NOT SPECIFIED) [Suspect]
     Indication: DEPRESSION
     Dates: start: 201202

REACTIONS (6)
  - Suicidal ideation [None]
  - Paranoia [None]
  - Mood swings [None]
  - Insomnia [None]
  - Drug ineffective [None]
  - Product quality issue [None]
